FAERS Safety Report 9801100 (Version 1)
Quarter: 2014Q1

REPORT INFORMATION
  Report Type: Spontaneous
  Country: US (occurrence: US)
  Receive Date: 20140107
  Receipt Date: 20140107
  Transmission Date: 20141002
  Serious: No
  Sender: FDA-Public Use
  Company Number: US-PFIZER INC-2014000807

PATIENT
  Age: 58 Year
  Sex: Female
  Weight: 69.84 kg

DRUGS (2)
  1. IBUPROFEN [Suspect]
     Indication: ARTHRALGIA
     Dosage: UNK
  2. TYLENOL [Concomitant]
     Indication: ARTHRALGIA
     Dosage: UNK

REACTIONS (1)
  - Abdominal discomfort [Unknown]
